FAERS Safety Report 23311166 (Version 1)
Quarter: 2023Q4

REPORT INFORMATION
  Report Type: Other
  Country: GB (occurrence: GB)
  Receive Date: 20231218
  Receipt Date: 20231218
  Transmission Date: 20240109
  Serious: Yes (Other)
  Sender: FDA-Public Use
  Company Number: None

PATIENT
  Age: 66 Year
  Sex: Female
  Weight: 89 kg

DRUGS (9)
  1. PREDNISOLONE [Suspect]
     Active Substance: PREDNISOLONE
     Indication: Product used for unknown indication
     Dosage: RESCUE COURSE: AT ONSET, TH., TABLET
     Route: 065
     Dates: start: 20231122
  2. CARBOCYSTEINE [Concomitant]
     Active Substance: CARBOCYSTEINE
     Indication: Product used for unknown indication
     Dosage: 2 DOSAGE FORM, TID
     Route: 065
     Dates: start: 20230119
  3. CEPHALEXIN [Concomitant]
     Active Substance: CEPHALEXIN
     Indication: Product used for unknown indication
     Dosage: 2 DOSAGE FORM, QID (ANTIBIOTIC)
     Route: 065
     Dates: start: 20230620
  4. BECLOMETHASONE DIPROPIONATE [Concomitant]
     Active Substance: BECLOMETHASONE DIPROPIONATE
     Indication: Product used for unknown indication
     Dosage: UNK, BID; ONE OR TWO PUFFS THROUGH SP
     Route: 055
     Dates: start: 20231122
  5. NYSTATIN [Concomitant]
     Active Substance: NYSTATIN
     Indication: Product used for unknown indication
     Dosage: 1 MILLILITER; KEPT IN MOUTH AS LONG AS POSSIBLE, FOU...
     Route: 065
     Dates: start: 20231004, end: 20231011
  6. OMEPRAZOLE [Concomitant]
     Active Substance: OMEPRAZOLE
     Indication: Dyspepsia
     Dosage: 1 DOSAGE FORM, QD
     Route: 065
     Dates: start: 20230119
  7. ALBUTEROL [Concomitant]
     Active Substance: ALBUTEROL
     Indication: Product used for unknown indication
     Dosage: 2 DOSAGE FORM, PRN; PUFFS (AIRWAY - RELIEVER ...
     Route: 055
     Dates: start: 20230620
  8. TRIMETHOPRIM [Concomitant]
     Active Substance: TRIMETHOPRIM
     Indication: Product used for unknown indication
     Dosage: 1 DOSAGE FORM, BID (ANTIBACTERIAL)
     Route: 065
     Dates: start: 20231004, end: 20231007
  9. CARBOMER [Concomitant]
     Active Substance: CARBOMER
     Indication: Product used for unknown indication
     Dosage: 1 DOSAGE FORM, PRN; DROP, CARBOMER 980 LUBRICANT - TE
     Route: 065
     Dates: start: 20230119

REACTIONS (3)
  - Chest pain [Recovered/Resolved]
  - Glossodynia [Recovered/Resolved]
  - Vomiting [Recovered/Resolved]
